FAERS Safety Report 4747138-7 (Version None)
Quarter: 2005Q3

REPORT INFORMATION
  Report Type: 
  Country: None (occurrence: None)
  Receive Date: 20050815
  Receipt Date: 20050801
  Transmission Date: 20060218
  Serious: Yes (Life-Threatening)
  Sender: FDA-Public Use
  Company Number: USA0506101711

PATIENT
  Age: 23 Year
  Sex: Female

DRUGS (1)
  1. CYMBALTA [Suspect]
     Indication: DEPRESSION
     Dosage: 30 MG DAY
     Dates: start: 20050628, end: 20050629

REACTIONS (4)
  - ABASIA [None]
  - FATIGUE [None]
  - INCOHERENT [None]
  - LOSS OF CONSCIOUSNESS [None]
